FAERS Safety Report 4490926-5 (Version None)
Quarter: 2004Q4

REPORT INFORMATION
  Report Type: 
  Country: None (occurrence: None)
  Receive Date: 20041027
  Receipt Date: 20041013
  Transmission Date: 20050328
  Serious: Yes (Hospitalization)
  Sender: FDA-Public Use
  Company Number: 206192

PATIENT
  Age: 41 Year
  Sex: Female
  Weight: 56.6996 kg

DRUGS (6)
  1. AVONEX [Suspect]
     Indication: MULTIPLE SCLEROSIS
     Dosage: 30 MCG QW IM
     Route: 030
     Dates: start: 20030601, end: 20030801
  2. AVONEX [Suspect]
     Indication: MULTIPLE SCLEROSIS
     Dosage: 30 MCG QW IM
     Route: 030
     Dates: start: 20030801
  3. DEPAKOTE [Concomitant]
  4. BIPOLAR MEDICATION (NOS) [Concomitant]
  5. BIRTH CONTROL PILL (NOS) [Concomitant]
  6. MIGRAINE MEDICATION (NOS) [Concomitant]

REACTIONS (8)
  - BIPOLAR DISORDER [None]
  - CHILLS [None]
  - CRYING [None]
  - HEADACHE [None]
  - INFLUENZA LIKE ILLNESS [None]
  - MIGRAINE [None]
  - NAUSEA [None]
  - VOMITING [None]
